FAERS Safety Report 7036748-2 (Version None)
Quarter: 2010Q4

REPORT INFORMATION
  Report Type: 
  Country: None (occurrence: None)
  Receive Date: 20101011
  Receipt Date: 20100930
  Transmission Date: 20110411
  Serious: No
  Sender: FDA-Public Use
  Company Number: 2009BI035142

PATIENT
  Age: 46 Year
  Sex: Female

DRUGS (1)
  1. TYSABRI [Suspect]
     Indication: MULTIPLE SCLEROSIS
     Route: 042
     Dates: start: 20090330

REACTIONS (6)
  - EYE INFECTION [None]
  - EYE INJURY [None]
  - FATIGUE [None]
  - LACRIMAL DISORDER [None]
  - LACRIMATION INCREASED [None]
  - SWOLLEN TEAR DUCT [None]
